FAERS Safety Report 5140153-3 (Version None)
Quarter: 2006Q4

REPORT INFORMATION
  Report Type: 
  Country: None (occurrence: None)
  Receive Date: 20061031
  Receipt Date: 20061019
  Transmission Date: 20070319
  Serious: Yes (Hospitalization)
  Sender: FDA-Public Use
  Company Number: US-ROCHE-468079

PATIENT
  Age: 4 Year
  Sex: Male
  Weight: 18.6 kg

DRUGS (5)
  1. ISOTRETINOIN [Suspect]
     Indication: JUVENILE CHRONIC MYELOMONOCYTIC LEUKAEMIA
     Dosage: ADMINISTERED DAILY
     Route: 065
     Dates: start: 20021221, end: 20021229
  2. ISOTRETINOIN [Suspect]
     Route: 065
     Dates: start: 20030113
  3. TIPIFARNIB [Suspect]
     Indication: JUVENILE CHRONIC MYELOMONOCYTIC LEUKAEMIA
     Dosage: ALSO REPORTED AS 450MG/DAY TOTAL DOSE ADMINISTERED WAS 9000MG
     Route: 048
     Dates: start: 20021125, end: 20021215
  4. FLUDARABINE [Suspect]
     Indication: JUVENILE CHRONIC MYELOMONOCYTIC LEUKAEMIA
     Route: 065
     Dates: start: 20021217, end: 20021221
  5. CYTOSINE ARABINOSIDE [Suspect]
     Indication: JUVENILE CHRONIC MYELOMONOCYTIC LEUKAEMIA
     Route: 065
     Dates: start: 20021217, end: 20021221

REACTIONS (5)
  - ANAEMIA [None]
  - CAECITIS [None]
  - DISEASE PROGRESSION [None]
  - FEBRILE NEUTROPENIA [None]
  - FUNGAL INFECTION [None]
